FAERS Safety Report 8406713-9 (Version None)
Quarter: 2012Q2

REPORT INFORMATION
  Report Type: 
  Country: None (occurrence: None)
  Receive Date: 20120604
  Receipt Date: 20120522
  Transmission Date: 20120825
  Serious: Yes (Death)
  Sender: FDA-Public Use
  Company Number: JP-PFIZER INC-2012131860

PATIENT
  Age: 23 Year
  Sex: Male

DRUGS (1)
  1. DOXORUBICIN HYDROCHLORIDE [Suspect]
     Indication: BONE SARCOMA

REACTIONS (1)
  - CARDIOMYOPATHY [None]
